FAERS Safety Report 10161238 (Version 1)
Quarter: 2014Q2

REPORT INFORMATION
  Report Type: Spontaneous
  Country: GB (occurrence: GB)
  Receive Date: 20140508
  Receipt Date: 20140508
  Transmission Date: 20141212
  Serious: Yes (Other)
  Sender: FDA-Public Use
  Company Number: GB-009507513-1405GBR003385

PATIENT
  Age: 29 Year
  Sex: Female

DRUGS (1)
  1. NEXPLANON [Suspect]
     Indication: CONTRACEPTION
     Route: 059
     Dates: start: 20140303, end: 20140417

REACTIONS (5)
  - Pyogenic granuloma [Recovering/Resolving]
  - Implant site inflammation [Recovering/Resolving]
  - Device extrusion [Recovering/Resolving]
  - Implant site scar [Not Recovered/Not Resolved]
  - Reaction to drug excipients [Recovering/Resolving]
